FAERS Safety Report 10968574 (Version 1)
Quarter: 2015Q1

REPORT INFORMATION
  Report Type: Spontaneous
  Country: SE (occurrence: SE)
  Receive Date: 20150330
  Receipt Date: 20150330
  Transmission Date: 20150721
  Serious: Yes (Other)
  Sender: FDA-Public Use
  Company Number: SE-ALLERGAN-1505295US

PATIENT
  Age: 18 Year
  Sex: Female

DRUGS (2)
  1. BOTOX [Suspect]
     Active Substance: ONABOTULINUMTOXINA
     Indication: HYPERHIDROSIS
     Dosage: UNK
     Dates: start: 201208, end: 201208
  2. BOTOX [Suspect]
     Active Substance: ONABOTULINUMTOXINA
     Dosage: UNK UNK, SINGLE
     Dates: start: 201112, end: 201112

REACTIONS (2)
  - Acanthosis nigricans [Not Recovered/Not Resolved]
  - Injection site reaction [None]

NARRATIVE: CASE EVENT DATE: 2011
